FAERS Safety Report 20450754 (Version 1)
Quarter: 2022Q1

REPORT INFORMATION
  Report Type: Spontaneous
  Country: US (occurrence: None)
  Receive Date: 20220209
  Receipt Date: 20220209
  Transmission Date: 20220424
  Serious: Yes (Disabling)
  Sender: FDA-Public Use
  Company Number: None

PATIENT
  Age: 73 Year
  Sex: Male
  Weight: 85.5 kg

DRUGS (9)
  1. CHLORHEXIDINE [Suspect]
     Active Substance: CHLORHEXIDINE
     Indication: Infection prophylaxis
     Route: 061
     Dates: start: 20220118, end: 20220118
  2. ACYCLOVIR [Concomitant]
     Active Substance: ACYCLOVIR
  3. CITALOPRAM [Concomitant]
     Active Substance: CITALOPRAM HYDROBROMIDE
  4. Gilteritinib (Xospata) [Concomitant]
  5. POSACONAZOLE [Concomitant]
     Active Substance: POSACONAZOLE
  6. TAMSULOSIN [Concomitant]
     Active Substance: TAMSULOSIN
  7. Ciprofloxacin and Dexamathasone [Concomitant]
  8. DORZOLAMIDE HYDROCHLORIDE [Concomitant]
     Active Substance: DORZOLAMIDE HYDROCHLORIDE
  9. TIMOLOL MALEATE [Concomitant]
     Active Substance: TIMOLOL MALEATE

REACTIONS (6)
  - Rash pruritic [None]
  - Rash erythematous [None]
  - Dry skin [None]
  - Skin exfoliation [None]
  - Sensitive skin [None]
  - Skin irritation [None]

NARRATIVE: CASE EVENT DATE: 20220118
